FAERS Safety Report 4566375-8 (Version None)
Quarter: 2005Q1

REPORT INFORMATION
  Report Type: 
  Country: None (occurrence: None)
  Receive Date: 20050126
  Receipt Date: 20050126
  Transmission Date: 20050727
  Serious: Yes (Hospitalization)
  Sender: FDA-Public Use
  Company Number: None

PATIENT
  Age: 58 Year
  Sex: Male
  Weight: 53.5244 kg

DRUGS (1)
  1. CISPLATIN [Suspect]
     Indication: LARYNGEAL CANCER
     Dosage: SEE IMAGE
     Route: 042
     Dates: start: 20041019, end: 20041111

REACTIONS (9)
  - ANAEMIA [None]
  - BRONCHIAL OBSTRUCTION [None]
  - DYSPNOEA [None]
  - HAEMORRHAGE [None]
  - HYPOXIA [None]
  - MYOCARDIAL INFARCTION [None]
  - RESPIRATORY DISORDER [None]
  - STRIDOR [None]
  - TREATMENT NONCOMPLIANCE [None]
